FAERS Safety Report 19610010 (Version 1)
Quarter: 2021Q3

REPORT INFORMATION
  Report Type: Other
  Country: US (occurrence: US)
  Receive Date: 20210726
  Receipt Date: 20210726
  Transmission Date: 20211014
  Serious: Yes (Other)
  Sender: FDA-Public Use
  Company Number: US-INTERCEPT-PM2021002247

PATIENT
  Sex: Female
  Weight: 77 kg

DRUGS (10)
  1. OCALIVA [Suspect]
     Active Substance: OBETICHOLIC ACID
     Dosage: 10 MILLIGRAM, QD
     Route: 048
     Dates: start: 201609
  2. OCALIVA [Suspect]
     Active Substance: OBETICHOLIC ACID
     Dosage: 5 MILLIGRAM, QD
     Route: 048
     Dates: start: 201611
  3. NORTRIPTYLINE [Concomitant]
     Active Substance: NORTRIPTYLINE
     Dosage: 10 MILLIGRAM, 2 TABS
  4. OCALIVA [Suspect]
     Active Substance: OBETICHOLIC ACID
     Indication: PRIMARY BILIARY CHOLANGITIS
     Dosage: 5 MILLIGRAM
     Route: 048
  5. AMITRIPTYLINE [Concomitant]
     Active Substance: AMITRIPTYLINE
     Route: 048
  6. OCALIVA [Suspect]
     Active Substance: OBETICHOLIC ACID
     Dosage: 10 MILLIGRAM, QD
     Route: 048
  7. QUETIAPINE. [Concomitant]
     Active Substance: QUETIAPINE
     Dosage: 50 MILLIGRAM, 2 TABS
  8. OCALIVA [Suspect]
     Active Substance: OBETICHOLIC ACID
     Dosage: 5 MILLIGRAM
     Route: 048
     Dates: start: 20161104
  9. COVID?19 VACCINE [Concomitant]
  10. OCALIVA [Suspect]
     Active Substance: OBETICHOLIC ACID
     Dosage: 10 MILLIGRAM, QD
     Route: 048

REACTIONS (7)
  - Fatigue [Unknown]
  - Osteoporosis [Unknown]
  - Laboratory test abnormal [Unknown]
  - Renal impairment [Unknown]
  - Dehydration [Unknown]
  - Autoimmune hepatitis [Unknown]
  - Asthenia [Unknown]
